FAERS Safety Report 17169030 (Version 5)
Quarter: 2020Q2

REPORT INFORMATION
  Report Type: Report from Study
  Country: US (occurrence: US)
  Receive Date: 20191218
  Receipt Date: 20200402
  Transmission Date: 20200713
  Serious: No
  Sender: FDA-Public Use
  Company Number: NVSC2019US068830

PATIENT
  Age: 68 Year
  Sex: Female

DRUGS (3)
  1. BEOVU [Suspect]
     Active Substance: BROLUCIZUMAB-DBLL
     Indication: NEOVASCULAR AGE-RELATED MACULAR DEGENERATION
     Dosage: 1 DF (OPHTHALMIC)
     Route: 050
     Dates: start: 20191209
  2. BEOVU [Suspect]
     Active Substance: BROLUCIZUMAB-DBLL
     Route: 047
     Dates: start: 20191208
  3. BEOVU [Suspect]
     Active Substance: BROLUCIZUMAB-DBLL
     Dosage: 1 DF (OPHTHALMIC)
     Route: 047
     Dates: start: 20191227

REACTIONS (8)
  - Dry eye [Recovered/Resolved]
  - Nervousness [Unknown]
  - Halo vision [Unknown]
  - Cough [Unknown]
  - Visual acuity reduced [Not Recovered/Not Resolved]
  - Halo vision [Recovered/Resolved]
  - Visual impairment [Recovered/Resolved]
  - Metamorphopsia [Unknown]

NARRATIVE: CASE EVENT DATE: 20191209
